FAERS Safety Report 23147004 (Version 1)
Quarter: 2023Q4

REPORT INFORMATION
  Report Type: Spontaneous
  Country: US (occurrence: US)
  Receive Date: 20231106
  Receipt Date: 20231106
  Transmission Date: 20240109
  Serious: No
  Sender: FDA-Public Use
  Company Number: US-AUROBINDO-AUR-APL-2023-035398

PATIENT
  Sex: Female

DRUGS (1)
  1. FLUCONAZOLE [Suspect]
     Active Substance: FLUCONAZOLE
     Indication: Product used for unknown indication
     Dosage: 5 MILLILITER, ONCE A DAY
     Route: 065

REACTIONS (5)
  - Dry mouth [Unknown]
  - Product packaging issue [Unknown]
  - Product dose omission issue [Unknown]
  - Product solubility abnormal [Unknown]
  - Product packaging quantity issue [Unknown]
